FAERS Safety Report 19054355 (Version 1)
Quarter: 2021Q1

REPORT INFORMATION
  Report Type: Report from Study
  Country: GB (occurrence: GB)
  Receive Date: 20210325
  Receipt Date: 20210325
  Transmission Date: 20210420
  Serious: Yes (Other)
  Sender: FDA-Public Use
  Company Number: GB-AMGEN-GBRSL2021044884

PATIENT
  Age: 63 Year
  Sex: Female

DRUGS (1)
  1. AMGEVITA [Suspect]
     Active Substance: ADALIMUMAB
     Indication: RHEUMATOID ARTHRITIS
     Dosage: 40 MILLIGRAM, Q2WK
     Route: 065

REACTIONS (4)
  - Hepatic mass [Unknown]
  - Hepatic lesion [Unknown]
  - Parathyroid tumour [Unknown]
  - Rheumatoid arthritis [Unknown]
